FAERS Safety Report 22320840 (Version 1)
Quarter: 2023Q2

REPORT INFORMATION
  Report Type: Spontaneous
  Country: ES (occurrence: ES)
  Receive Date: 20230515
  Receipt Date: 20230515
  Transmission Date: 20230722
  Serious: Yes (Life-Threatening)
  Sender: FDA-Public Use
  Company Number: None

PATIENT
  Age: 80 Year
  Sex: Female

DRUGS (2)
  1. PREGABALIN [Interacting]
     Active Substance: PREGABALIN
     Indication: Back pain
     Dosage: 75 MILLIGRAM,1 TOTAL (SHE RECEIVED A SINGLE DOSE)
     Route: 048
     Dates: start: 20230425, end: 20230425
  2. TRAZODONE [Interacting]
     Active Substance: TRAZODONE HYDROCHLORIDE
     Indication: Anxiety
     Dosage: 100 MILLIGRAM,1 TOTAL(SHE RECEIVED A SINGLE DOSE)
     Route: 048
     Dates: start: 20230425, end: 20230425

REACTIONS (4)
  - Respiratory acidosis [Recovering/Resolving]
  - Coma [Recovered/Resolved]
  - Respiratory failure [Recovered/Resolved]
  - Drug interaction [Unknown]

NARRATIVE: CASE EVENT DATE: 20230426
